FAERS Safety Report 7186453-7 (Version None)
Quarter: 2010Q4

REPORT INFORMATION
  Report Type: 
  Country: None (occurrence: None)
  Receive Date: 20101222
  Receipt Date: 20101215
  Transmission Date: 20110411
  Serious: Yes (Other)
  Sender: FDA-Public Use
  Company Number: B0689234A

PATIENT
  Age: 36 Year
  Sex: Female

DRUGS (1)
  1. ORLISTAT [Suspect]
     Indication: WEIGHT CONTROL
     Dosage: 360MG PER DAY
     Route: 048
     Dates: start: 20091201

REACTIONS (1)
  - PALPITATIONS [None]
